FAERS Safety Report 14410324 (Version 2)
Quarter: 2018Q1

REPORT INFORMATION
  Report Type: Spontaneous
  Country: FR (occurrence: FR)
  Receive Date: 20180119
  Receipt Date: 20180301
  Transmission Date: 20180509
  Serious: Yes (Other)
  Sender: FDA-Public Use
  Company Number: FR-ASTRAZENECA-2018SE06298

PATIENT
  Age: 847 Month
  Sex: Male

DRUGS (2)
  1. INEXIUM [Suspect]
     Active Substance: ESOMEPRAZOLE
     Indication: GASTROOESOPHAGEAL REFLUX DISEASE
     Route: 048
  2. INEXIUM [Suspect]
     Active Substance: ESOMEPRAZOLE
     Indication: GASTROOESOPHAGEAL REFLUX DISEASE
     Route: 048
     Dates: start: 201712, end: 20180110

REACTIONS (14)
  - Magnesium deficiency [Unknown]
  - Hypoglycaemia [Unknown]
  - Fatigue [Unknown]
  - Headache [Recovering/Resolving]
  - Vertigo [Unknown]
  - Depression [Unknown]
  - Therapy cessation [Unknown]
  - Visual impairment [Unknown]
  - Constipation [Not Recovered/Not Resolved]
  - Ventricular fibrillation [Unknown]
  - Dysgeusia [Unknown]
  - Arthralgia [Unknown]
  - Abdominal pain [Recovering/Resolving]
  - Hypersensitivity [Unknown]

NARRATIVE: CASE EVENT DATE: 201712
